FAERS Safety Report 4366996-1 (Version None)
Quarter: 2004Q2

REPORT INFORMATION
  Report Type: 
  Country: None (occurrence: None)
  Receive Date: 20040528
  Receipt Date: 20040521
  Transmission Date: 20050107
  Serious: Yes (Other)
  Sender: FDA-Public Use
  Company Number: US-BRISTOL-MYERS SQUIBB COMPANY-12593059

PATIENT
  Age: 68 Year
  Sex: Male
  Weight: 92 kg

DRUGS (4)
  1. CETUXIMAB [Suspect]
     Indication: PANCREATIC CARCINOMA
     Dosage: 1ST DOSE 400MG/M2 02-FEB-04;WEEKLY DOSE 250MG/M2,CYCLE=6 WKS,CYCLE 2 WEEK 4 05-APR-04
     Route: 042
     Dates: start: 20040405, end: 20040405
  2. IRINOTECAN [Suspect]
     Indication: PANCREATIC CARCINOMA
     Dosage: 1ST ON 02-FEB-04,WEEKLY FOR WK 1-4 OF 6WK CYCLE;TOTAL DOSE(CYCLE 2)321MG-THEN HELD
     Route: 042
     Dates: start: 20040329, end: 20040329
  3. DOCETAXEL [Suspect]
     Indication: PANCREATIC CARCINOMA
     Dosage: 1ST ON 02-FEB-04.WEEKLY FOR WKS 1-4 OF 6WK CYCLE.TOTAL DOSE CYCLE 2-225MG THEN HELD
     Route: 042
     Dates: start: 20040329, end: 20040329
  4. ENOXAPARIN SODIUM [Concomitant]
     Dosage: TOTAL DOSE THIS COURSE 800 MG-MISSED 2 DAYS OF THIS DRUG-DUE INSERTION OF ACCESS DEVICE
     Route: 058
     Dates: start: 20040404, end: 20040404

REACTIONS (2)
  - HYPOKALAEMIA [None]
  - HYPOMAGNESAEMIA [None]
